FAERS Safety Report 10430404 (Version 1)
Quarter: 2014Q3

REPORT INFORMATION
  Report Type: Spontaneous
  Country: TN (occurrence: None)
  Receive Date: 20140902
  Receipt Date: 20140902
  Transmission Date: 20150326
  Serious: Yes (Other)
  Sender: FDA-Public Use
  Company Number: COR_00061_2014

PATIENT
  Age: 57 Year
  Sex: Male

DRUGS (4)
  1. CISPLATIN. [Concomitant]
     Active Substance: CISPLATIN
  2. STREPTOZOTOCIN [Concomitant]
     Active Substance: STREPTOZOCIN
  3. DOXORUBICIN [Concomitant]
     Active Substance: DOXORUBICIN
  4. ETOPOSIDE. [Suspect]
     Active Substance: ETOPOSIDE
     Indication: PANCREATIC NEUROENDOCRINE TUMOUR
     Dosage: PER DAY, FROM DAY 1 TO DAY 3 INTRAVENOUS (NOT OTHERWISE SPECIFIED)?

REACTIONS (1)
  - Atrial fibrillation [None]
